FAERS Safety Report 8831242 (Version 2)
Quarter: 2012Q4

REPORT INFORMATION
  Report Type: 
  Country: US (occurrence: US)
  Receive Date: 20121008
  Receipt Date: 20121120
  Transmission Date: 20130627
  Serious: No
  Sender: FDA-Public Use
  Company Number: US-009507513-1208USA009943

PATIENT
  Age: 68 Year
  Sex: Female
  Weight: 49.89 kg

DRUGS (2)
  1. CLARITIN ORAL SOLUTION [Suspect]
     Indication: SNEEZING
     Dosage: 7.5 mg, Once
     Route: 048
     Dates: start: 20120806, end: 20120806
  2. CLARITIN ORAL SOLUTION [Suspect]
     Indication: RHINORRHOEA

REACTIONS (6)
  - Pollakiuria [Recovered/Resolved]
  - Dizziness [Recovered/Resolved]
  - Palpitations [Recovered/Resolved]
  - Nausea [Recovered/Resolved]
  - Malaise [Recovered/Resolved]
  - Underdose [Recovered/Resolved]
